FAERS Safety Report 22692600 (Version 4)
Quarter: 2024Q3

REPORT INFORMATION
  Report Type: Spontaneous
  Country: US (occurrence: US)
  Receive Date: 20230711
  Receipt Date: 20240722
  Transmission Date: 20241017
  Serious: No
  Sender: ASTELLAS
  Company Number: US-ASTELLAS-2022US028624

PATIENT
  Age: 66 Year
  Sex: Female

DRUGS (5)
  1. MYRBETRIQ [Suspect]
     Active Substance: MIRABEGRON
     Indication: Hypertonic bladder
     Route: 048
     Dates: start: 202207
  2. MYRBETRIQ [Suspect]
     Active Substance: MIRABEGRON
     Dosage: 75 MG, ONCE DAILY (TOOK ONE 25 MG MIRABEGRON TABLET AND ONE 50 MG MIRABEGRON TABLET)
     Route: 048
     Dates: start: 20220808, end: 20220808
  3. MYRBETRIQ [Suspect]
     Active Substance: MIRABEGRON
     Indication: Hypertonic bladder
     Dosage: 75 MG, ONCE DAILY (TOOK ONE 25 MG MIRABEGRON TABLET AND ONE 50 MG MIRABEGRON TABLET)
     Route: 048
     Dates: start: 20220808, end: 20220808
  4. MYRBETRIQ [Suspect]
     Active Substance: MIRABEGRON
     Route: 048
     Dates: start: 20220809, end: 20220809
  5. HERBALS [Suspect]
     Active Substance: HERBALS
     Indication: Arthritis
     Dosage: UNK UNK, UNKNOWN FREQ.
     Route: 065

REACTIONS (5)
  - Drug intolerance [Unknown]
  - Urinary incontinence [Unknown]
  - Pollakiuria [Unknown]
  - Stress [Unknown]
  - Accidental overdose [Unknown]

NARRATIVE: CASE EVENT DATE: 20220801
